FAERS Safety Report 19002613 (Version 1)
Quarter: 2021Q1

REPORT INFORMATION
  Report Type: Spontaneous
  Country: US (occurrence: US)
  Receive Date: 20210312
  Receipt Date: 20210312
  Transmission Date: 20210420
  Serious: No
  Sender: FDA-Public Use
  Company Number: US-ALLERGAN-2031356US

PATIENT
  Age: 56 Year
  Sex: Female

DRUGS (1)
  1. ESTRADIOL VAGINAL CREAM USP 0.01% [Suspect]
     Active Substance: ESTRADIOL
     Indication: ATROPHIC VULVOVAGINITIS
     Dosage: UNK
     Route: 067
     Dates: start: 202008, end: 202008

REACTIONS (3)
  - Abdominal distension [Not Recovered/Not Resolved]
  - Vulvovaginal discomfort [Recovered/Resolved]
  - Vaginal haemorrhage [Recovered/Resolved]

NARRATIVE: CASE EVENT DATE: 202008
